FAERS Safety Report 12143988 (Version 1)
Quarter: 2016Q1

REPORT INFORMATION
  Report Type: Spontaneous
  Country: AU (occurrence: AU)
  Receive Date: 20160304
  Receipt Date: 20160304
  Transmission Date: 20160526
  Serious: Yes (Other)
  Sender: FDA-Public Use
  Company Number: AU-INVENTIA-000102

PATIENT
  Age: 17 Year
  Sex: Male

DRUGS (2)
  1. CLOZAPINE. [Concomitant]
     Active Substance: CLOZAPINE
     Indication: SCHIZOPHRENIA
  2. METFORMIN [Suspect]
     Active Substance: METFORMIN HYDROCHLORIDE
     Indication: WEIGHT INCREASED
     Dosage: THAN THE DOSE WAS FURTHER INCREASED TO 3000 MG/DAY AND ALSO FINALLY DECREASED TO 500 MG  PO BD.
     Route: 048

REACTIONS (1)
  - Pancreatitis [Recovered/Resolved]
